FAERS Safety Report 9721935 (Version 3)
Quarter: 2014Q1

REPORT INFORMATION
  Report Type: Spontaneous
  Country: AU (occurrence: AU)
  Receive Date: 20131202
  Receipt Date: 20140314
  Transmission Date: 20141002
  Serious: Yes (Hospitalization)
  Sender: FDA-Public Use
  Company Number: AU-AMGEN-AUSSP2013083182

PATIENT
  Age: 83 Year
  Sex: Female
  Weight: 45 kg

DRUGS (7)
  1. PROLIA [Suspect]
     Indication: PRODUCT USED FOR UNKNOWN INDICATION
     Dosage: 1 ML, UNK
     Route: 058
     Dates: start: 20130829
  2. SIMVASTATIN [Concomitant]
     Indication: BLOOD CHOLESTEROL INCREASED
     Dosage: 20 MG, QD
     Route: 048
     Dates: start: 2012
  3. SIMVASTATIN [Concomitant]
     Indication: CEREBROVASCULAR ACCIDENT
  4. EFFEXOR [Concomitant]
     Indication: DEPRESSION
     Dosage: 75 MG, QD
     Route: 048
     Dates: start: 2011
  5. FELODUR ER [Concomitant]
     Indication: BLOOD PRESSURE ABNORMAL
     Dosage: 5 MG, QD
     Route: 048
     Dates: start: 1993
  6. MAREVAN [Concomitant]
     Indication: AORTIC VALVE REPLACEMENT
  7. TEMAZE [Concomitant]
     Indication: INSOMNIA
     Dosage: 10 MG, QD
     Route: 048

REACTIONS (3)
  - Fall [Recovering/Resolving]
  - Contusion [Unknown]
  - Confusional state [Unknown]
